FAERS Safety Report 7353976-7 (Version None)
Quarter: 2011Q1

REPORT INFORMATION
  Report Type: 
  Country: None (occurrence: None)
  Receive Date: 20110315
  Receipt Date: 20110302
  Transmission Date: 20110831
  Serious: Yes (Other)
  Sender: FDA-Public Use
  Company Number: PHHY2010CA03473

PATIENT
  Sex: Female

DRUGS (17)
  1. EXJADE [Suspect]
     Dosage: 1000 MG, DAILY
     Route: 048
  2. EXJADE [Suspect]
     Indication: MYELODYSPLASTIC SYNDROME
     Dosage: 2000 MG, QD
     Route: 048
     Dates: start: 20100125
  3. EXJADE [Suspect]
     Dosage: 1000 MG, BID
     Route: 048
     Dates: start: 20100125
  4. EXJADE [Suspect]
     Dosage: 1000 MG, QD
     Route: 048
  5. EXJADE [Suspect]
     Dosage: 1500 MG, QD
     Route: 048
  6. EXJADE [Suspect]
     Dosage: 1000 MG, QD
     Route: 048
     Dates: start: 20100125, end: 20100427
  7. VITAMIN D [Concomitant]
  8. FLAXSEED OIL [Concomitant]
  9. MEGESTROL ACETATE [Concomitant]
     Indication: APPETITE DISORDER
  10. EXJADE [Suspect]
     Dosage: 1000 MG DAILY
     Route: 048
  11. EXJADE [Suspect]
     Dosage: 500 MG, BID
  12. LEVOTHYROXINE [Concomitant]
     Dosage: 0.1 MG, QD
     Route: 048
     Dates: start: 19680101
  13. CALCIUM [Concomitant]
     Dosage: 1500 MG, UNK
  14. CENTRUM [Concomitant]
  15. GLUCOSAMINE [Concomitant]
  16. EXJADE [Suspect]
     Dosage: 02 DF, BID
     Route: 048
  17. EXJADE [Suspect]
     Dosage: 1000 MG, QD
     Route: 048

REACTIONS (35)
  - PYREXIA [None]
  - RHINORRHOEA [None]
  - DIZZINESS [None]
  - LABORATORY TEST ABNORMAL [None]
  - ANXIETY [None]
  - PAIN [None]
  - BACK PAIN [None]
  - PAIN IN EXTREMITY [None]
  - FEELING ABNORMAL [None]
  - DIABETES MELLITUS [None]
  - DRY EYE [None]
  - URTICARIA [None]
  - COUGH [None]
  - OROPHARYNGEAL PAIN [None]
  - NECK PAIN [None]
  - MUSCULOSKELETAL DISCOMFORT [None]
  - ORAL HERPES [None]
  - SCLERAL DISCOLOURATION [None]
  - PRURITUS [None]
  - RASH [None]
  - POLLAKIURIA [None]
  - PARAESTHESIA [None]
  - LIP EXFOLIATION [None]
  - ASTHENIA [None]
  - ABDOMINAL DISCOMFORT [None]
  - MUSCULOSKELETAL PAIN [None]
  - BLOOD GLUCOSE INCREASED [None]
  - INFLUENZA [None]
  - DEPRESSED MOOD [None]
  - MUSCULOSKELETAL STIFFNESS [None]
  - EYE DISORDER [None]
  - VISION BLURRED [None]
  - FATIGUE [None]
  - CARDIAC DISORDER [None]
  - MYALGIA [None]
